FAERS Safety Report 23507381 (Version 2)
Quarter: 2024Q2

REPORT INFORMATION
  Report Type: Spontaneous
  Country: US (occurrence: US)
  Receive Date: 20240209
  Receipt Date: 20240610
  Transmission Date: 20240715
  Serious: Yes (Death)
  Sender: FDA-Public Use
  Company Number: US-MIRATI-MT2024PM05916

PATIENT
  Sex: Male

DRUGS (2)
  1. KRAZATI [Suspect]
     Active Substance: ADAGRASIB
     Indication: Bile duct cancer
     Dosage: 600 MG, BID
     Route: 048
     Dates: start: 20231224, end: 202401
  2. KRAZATI [Suspect]
     Active Substance: ADAGRASIB
     Indication: Hepatic cancer

REACTIONS (3)
  - Death [Fatal]
  - Asthenia [Unknown]
  - Off label use [Unknown]

NARRATIVE: CASE EVENT DATE: 20231224
